FAERS Safety Report 19227908 (Version 9)
Quarter: 2021Q3

REPORT INFORMATION
  Report Type: Spontaneous
  Country: CA (occurrence: CA)
  Receive Date: 20210507
  Receipt Date: 20210914
  Transmission Date: 20211014
  Serious: Yes (Hospitalization, Other)
  Sender: FDA-Public Use
  Company Number: CA-CELLTRION INC.-2021CA006172

PATIENT

DRUGS (11)
  1. INFLECTRA [Suspect]
     Active Substance: INFLIXIMAB-DYYB
     Indication: CROHN^S DISEASE
     Dosage: 300 MG, INDUCTION AT WEEKS 0, 2, 6; MAINTENANCE EVERY 8 WEEKS
     Route: 042
     Dates: start: 20210122
  2. INFLECTRA [Suspect]
     Active Substance: INFLIXIMAB-DYYB
     Dosage: 300 MG, INDUCTION AT WEEKS 0, 2, 6; MAINTENANCE EVERY 8 WEEKS
     Route: 042
     Dates: start: 20210304
  3. INFLECTRA [Suspect]
     Active Substance: INFLIXIMAB-DYYB
     Dosage: 300 MG, INDUCTION AT WEEKS 0, 2, 6; MAINTENANCE EVERY 8 WEEKS (RE?INDUCTION
     Route: 042
     Dates: start: 20210601
  4. BISOPROLOL [Concomitant]
     Active Substance: BISOPROLOL
     Dosage: 1 DF
     Route: 065
  5. PANTOLOC [PANTOPRAZOLE] [Concomitant]
     Active Substance: PANTOPRAZOLE SODIUM
     Dosage: 1 DF
     Route: 065
  6. RAMIPRIL. [Concomitant]
     Active Substance: RAMIPRIL
     Dosage: 1 DF
     Route: 065
  7. INFLECTRA [Suspect]
     Active Substance: INFLIXIMAB-DYYB
     Dosage: 300 MG, INDUCTION AT WEEKS 0, 2, 6; MAINTENANCE EVERY 8 WEEKS (RE?INDUCTION
     Route: 042
     Dates: start: 20210824
  8. INFLECTRA [Suspect]
     Active Substance: INFLIXIMAB-DYYB
     Dosage: 300 MG, INDUCTION AT WEEKS 0, 2, 6; MAINTENANCE EVERY 8 WEEKS (RE?INDUCTION
     Route: 042
     Dates: start: 20210517
  9. KEPPRA [Concomitant]
     Active Substance: LEVETIRACETAM
     Dosage: 1 DF
     Route: 065
  10. INFLECTRA [Suspect]
     Active Substance: INFLIXIMAB-DYYB
     Dosage: 300 MG, INDUCTION AT WEEKS 0, 2, 6; MAINTENANCE EVERY 8 WEEKS (RE?INDUCTION
     Route: 042
     Dates: start: 20210629
  11. LASIX [Concomitant]
     Active Substance: FUROSEMIDE
     Dosage: 1 DF
     Route: 065

REACTIONS (8)
  - Skin abrasion [Recovering/Resolving]
  - Off label use [Unknown]
  - Hand fracture [Recovering/Resolving]
  - Road traffic accident [Not Recovered/Not Resolved]
  - Cerebral haemorrhage [Unknown]
  - Wrist fracture [Recovering/Resolving]
  - Upper limb fracture [Not Recovered/Not Resolved]
  - Facial bones fracture [Unknown]

NARRATIVE: CASE EVENT DATE: 202104
